FAERS Safety Report 10744169 (Version 2)
Quarter: 2015Q1

REPORT INFORMATION
  Report Type: Spontaneous
  Country: US (occurrence: None)
  Receive Date: 20150126
  Receipt Date: 20150203
  Transmission Date: 20150721
  Serious: Yes (Other)
  Sender: FDA-Public Use
  Company Number: 20150025

PATIENT

DRUGS (1)
  1. DOPAMINE [Suspect]
     Active Substance: DOPAMINE\DOPAMINE HYDROCHLORIDE
     Indication: HYPOTENSION
     Dosage: 12.5 MCG/KG/MIN
     Route: 041

REACTIONS (2)
  - Hypertension [None]
  - Cerebrovascular disorder [None]
